FAERS Safety Report 7111208-9 (Version None)
Quarter: 2010Q4

REPORT INFORMATION
  Report Type: 
  Country: None (occurrence: None)
  Receive Date: 20101118
  Receipt Date: 20091006
  Transmission Date: 20110411
  Serious: No
  Sender: FDA-Public Use
  Company Number: US-PFIZER INC-2009262097

PATIENT
  Sex: Female
  Weight: 80.74 kg

DRUGS (7)
  1. ZYVOX [Suspect]
     Indication: STAPHYLOCOCCAL INFECTION
     Dosage: 600 MG, 2X/DAY
     Dates: start: 20090828
  2. NIACIN [Concomitant]
     Dosage: 500 MG, 1X/DAY
     Route: 048
  3. METFORMIN [Concomitant]
     Dosage: 1000 MG, 2X/DAY
     Route: 048
  4. ALPRAZOLAM [Concomitant]
     Dosage: 0.5 MG, AS NEEDED
     Route: 048
  5. LANTUS [Concomitant]
     Dosage: 5 IU, 1X/DAY
  6. COREG [Concomitant]
     Dosage: 25 MG, 2X/DAY
     Route: 048
  7. FISH OIL [Concomitant]
     Dosage: 1000 MG, 1X/DAY
     Route: 048

REACTIONS (4)
  - DIARRHOEA [None]
  - INCORRECT DOSE ADMINISTERED [None]
  - NAUSEA [None]
  - VOMITING [None]
